FAERS Safety Report 7071587-8 (Version None)
Quarter: 2010Q4

REPORT INFORMATION
  Report Type: 
  Country: None (occurrence: None)
  Receive Date: 20101029
  Receipt Date: 20090924
  Transmission Date: 20110411
  Serious: No
  Sender: FDA-Public Use
  Company Number: A0808877A

PATIENT
  Age: 65 Year
  Sex: Female

DRUGS (8)
  1. ADVAIR DISKUS 100/50 [Suspect]
     Indication: ASTHMA
     Dosage: 1PUFF TWICE PER DAY
     Route: 055
     Dates: start: 20070901
  2. TRICOR [Concomitant]
  3. CRESTOR [Concomitant]
  4. DIAVAN [Concomitant]
  5. METOPROLOL [Concomitant]
  6. XALATAN [Concomitant]
  7. ALENDRONATE SODIUM [Concomitant]
  8. SERTRALINE HYDROCHLORIDE [Concomitant]

REACTIONS (1)
  - OROPHARYNGEAL PAIN [None]
